FAERS Safety Report 6874918-4 (Version None)
Quarter: 2010Q3

REPORT INFORMATION
  Report Type: 
  Country: None (occurrence: None)
  Receive Date: 20100723
  Receipt Date: 20100713
  Transmission Date: 20110219
  Serious: Yes (Hospitalization)
  Sender: FDA-Public Use
  Company Number: 2010MA000753

PATIENT
  Age: 31 Year
  Sex: Male

DRUGS (4)
  1. FEVERALL [Suspect]
     Dates: start: 20100603, end: 20100603
  2. ZAPONEX (NO PREF. NAME) [Suspect]
     Indication: SCHIZOPHRENIA
     Dosage: PO
     Route: 048
     Dates: start: 20091130
  3. CON MEDS [Concomitant]
  4. PREV MEDS [Concomitant]

REACTIONS (5)
  - CONFUSIONAL STATE [None]
  - HALLUCINATION, AUDITORY [None]
  - MOOD ALTERED [None]
  - MULTIPLE DRUG OVERDOSE [None]
  - SEDATION [None]
